FAERS Safety Report 5933618-5 (Version None)
Quarter: 2008Q4

REPORT INFORMATION
  Report Type: 
  Country: None (occurrence: None)
  Receive Date: 20081024
  Receipt Date: 20081017
  Transmission Date: 20090506
  Serious: Yes (Hospitalization)
  Sender: FDA-Public Use
  Company Number: TCI2008A05284

PATIENT
  Age: 72 Year
  Sex: Female

DRUGS (1)
  1. ACTOS [Suspect]
     Indication: DIABETES MELLITUS
     Dosage: 30 MG (30 MG, 1 D); PER ORAL
     Route: 048
     Dates: end: 20081016

REACTIONS (2)
  - GENERALISED OEDEMA [None]
  - PLEURAL EFFUSION [None]
